FAERS Safety Report 8234364-8 (Version None)
Quarter: 2012Q1

REPORT INFORMATION
  Report Type: 
  Country: None (occurrence: None)
  Receive Date: 20120326
  Receipt Date: 20120321
  Transmission Date: 20120608
  Serious: Yes (Hospitalization)
  Sender: FDA-Public Use
  Company Number: SE-ROCHE-1016446

PATIENT
  Sex: Female
  Weight: 90 kg

DRUGS (10)
  1. CIPROFLOXACIN HCL [Concomitant]
     Dates: start: 20111111, end: 20111125
  2. ORUDIS [Concomitant]
  3. FLAGYL [Concomitant]
  4. PIPERACILLIN AND TAZOBACTAM [Concomitant]
  5. ACTEMRA [Suspect]
     Route: 065
     Dates: start: 20110921
  6. ACTEMRA [Suspect]
     Indication: PRODUCT USED FOR UNKNOWN INDICATION
     Route: 065
     Dates: start: 20090723
  7. ACTEMRA [Suspect]
     Route: 065
     Dates: start: 20111019
  8. ACTEMRA [Suspect]
     Route: 065
     Dates: start: 20110824
  9. ACTEMRA [Suspect]
     Route: 065
     Dates: start: 20110727
  10. METHOTREXATE [Concomitant]

REACTIONS (3)
  - DIVERTICULITIS [None]
  - LUNG DISORDER [None]
  - LARGE INTESTINE PERFORATION [None]
